FAERS Safety Report 17589037 (Version 2)
Quarter: 2020Q2

REPORT INFORMATION
  Report Type: Spontaneous
  Country: DE (occurrence: DE)
  Receive Date: 20200327
  Receipt Date: 20200402
  Transmission Date: 20200713
  Serious: Yes (Other)
  Sender: FDA-Public Use
  Company Number: DE-TEVA-2020-DE-1213912

PATIENT
  Sex: Male

DRUGS (5)
  1. VALSARTAN HENNIG PLUS 160/12.5 [Suspect]
     Active Substance: HYDROCHLOROTHIAZIDE\VALSARTAN
     Indication: HYPERTENSION
     Dosage: 1 DF CONTAINS 160 MG VALSARTAN AND 12.5 MG HYDROCHLOROTHIAZIDE
     Dates: start: 20160913
  2. VALSARTAN 1A PLUS 160/12.5 [Suspect]
     Active Substance: HYDROCHLOROTHIAZIDE\VALSARTAN
     Indication: HYPERTENSION
     Dosage: 1 DF CONTAINS 160 MG VALSARTAN AND 12.5 MG HYDROCHLOROTHIAZIDE
     Dates: start: 20170214
  3. VALSARTAN DURA 80 MG [Suspect]
     Active Substance: VALSARTAN
     Indication: HYPERTENSION
     Dates: start: 20180723
  4. VALSARTAN ABZ 80 MG FILMTABLETTEN [Suspect]
     Active Substance: VALSARTAN
     Indication: HYPERTENSION
     Route: 048
     Dates: start: 20170713
  5. VALSACOR 80 MG FILMTABLETTEN [Suspect]
     Active Substance: VALSARTAN
     Indication: HYPERTENSION
     Dates: start: 20181214

REACTIONS (14)
  - Swelling face [Unknown]
  - Vertigo [Unknown]
  - Headache [Unknown]
  - Diarrhoea [Unknown]
  - Urticaria [Unknown]
  - Cough [Unknown]
  - Abdominal pain [Unknown]
  - Nausea [Unknown]
  - Asthenia [Unknown]
  - Product impurity [Unknown]
  - Swollen tongue [Unknown]
  - Muscle spasms [Unknown]
  - Fatigue [Unknown]
  - Rectal cancer [Unknown]
